FAERS Safety Report 10705576 (Version 5)
Quarter: 2015Q1

REPORT INFORMATION
  Report Type: Report from Study
  Country: CA (occurrence: CA)
  Receive Date: 20150112
  Receipt Date: 20150204
  Transmission Date: 20150721
  Serious: Yes (Other)
  Sender: FDA-Public Use
  Company Number: CA-ROCHE-1487026

PATIENT
  Age: 58 Year
  Sex: Female
  Weight: 85 kg

DRUGS (13)
  1. FUROSEMIDE. [Concomitant]
     Active Substance: FUROSEMIDE
  2. KADCYLA [Suspect]
     Active Substance: ADO-TRASTUZUMAB EMTANSINE
     Indication: HER-2 POSITIVE BREAST CANCER
     Route: 042
     Dates: start: 20141105
  3. HERCEPTIN [Suspect]
     Active Substance: TRASTUZUMAB
     Indication: BREAST CANCER
     Route: 065
     Dates: start: 2011
  4. ATIVAN [Concomitant]
     Active Substance: LORAZEPAM
  5. SENNA [Concomitant]
     Active Substance: SENNA LEAF\SENNOSIDES\SENNOSIDES A AND B
  6. DOCUSATE [Concomitant]
     Active Substance: DOCUSATE
  7. RAMIPRIL. [Concomitant]
     Active Substance: RAMIPRIL
  8. PANTOPRAZOLE [Concomitant]
     Active Substance: PANTOPRAZOLE SODIUM
  9. KADCYLA [Suspect]
     Active Substance: ADO-TRASTUZUMAB EMTANSINE
     Route: 042
     Dates: start: 20141126
  10. TAXOTERE [Suspect]
     Active Substance: DOCETAXEL
     Indication: BREAST CANCER
     Route: 065
  11. KADCYLA [Suspect]
     Active Substance: ADO-TRASTUZUMAB EMTANSINE
     Route: 042
     Dates: start: 20141217
  12. KADCYLA [Suspect]
     Active Substance: ADO-TRASTUZUMAB EMTANSINE
     Dosage: PLANNED CHANGE
     Route: 042
  13. CIPRALEX [Concomitant]
     Active Substance: ESCITALOPRAM OXALATE

REACTIONS (33)
  - Peripheral swelling [Not Recovered/Not Resolved]
  - Blood albumin decreased [Unknown]
  - Hypoaesthesia [Not Recovered/Not Resolved]
  - Pleural effusion [Not Recovered/Not Resolved]
  - Ascites [Unknown]
  - Haemoglobin decreased [Not Recovered/Not Resolved]
  - Aspartate aminotransferase increased [Not Recovered/Not Resolved]
  - Blood lactate dehydrogenase increased [Not Recovered/Not Resolved]
  - Weight decreased [Unknown]
  - Ascites [Not Recovered/Not Resolved]
  - Haemoglobin decreased [Unknown]
  - Blood lactate dehydrogenase increased [Unknown]
  - Infusion related reaction [Recovered/Resolved]
  - Mean cell haemoglobin decreased [Unknown]
  - Lymphocyte count decreased [Unknown]
  - Aspartate aminotransferase increased [Unknown]
  - Mean cell haemoglobin decreased [Not Recovered/Not Resolved]
  - Mean cell haemoglobin concentration decreased [Not Recovered/Not Resolved]
  - Monocyte percentage increased [Not Recovered/Not Resolved]
  - Drug hypersensitivity [Unknown]
  - Red cell distribution width increased [Not Recovered/Not Resolved]
  - Lymphocyte percentage decreased [Unknown]
  - Monocyte count increased [Unknown]
  - Lymphocyte percentage decreased [Not Recovered/Not Resolved]
  - Blood chloride decreased [Not Recovered/Not Resolved]
  - Weight decreased [Unknown]
  - Haematology test abnormal [Unknown]
  - Platelet count increased [Unknown]
  - Lymphocyte count decreased [Not Recovered/Not Resolved]
  - Blood potassium decreased [Not Recovered/Not Resolved]
  - Blood albumin decreased [Not Recovered/Not Resolved]
  - Blood bilirubin decreased [Not Recovered/Not Resolved]
  - Nausea [Unknown]

NARRATIVE: CASE EVENT DATE: 2013
